FAERS Safety Report 4851639-0 (Version None)
Quarter: 2005Q4

REPORT INFORMATION
  Report Type: 
  Country: None (occurrence: None)
  Receive Date: 20051212
  Receipt Date: 20050317
  Transmission Date: 20060501
  Serious: Yes (Hospitalization)
  Sender: FDA-Public Use
  Company Number: US-MERCK-0503USA03480

PATIENT
  Age: 50 Year
  Sex: Female
  Weight: 154 kg

DRUGS (6)
  1. VIOXX [Suspect]
     Indication: ARTHRITIS
     Route: 048
     Dates: start: 20000308, end: 20040910
  2. PEPCID [Concomitant]
     Route: 065
  3. HYDRODIURIL [Concomitant]
     Route: 065
  4. ZOLOFT [Concomitant]
     Route: 065
  5. ALBUTEROL [Concomitant]
     Route: 065
  6. PREMPRO [Concomitant]
     Route: 065

REACTIONS (6)
  - ACUTE MYOCARDIAL INFARCTION [None]
  - CARDIOMEGALY [None]
  - CHEST PAIN [None]
  - CORONARY ARTERY DISEASE [None]
  - FALL [None]
  - PAIN IN EXTREMITY [None]
